FAERS Safety Report 10258586 (Version 1)
Quarter: 2014Q2

REPORT INFORMATION
  Report Type: Spontaneous
  Country: US (occurrence: None)
  Receive Date: 20140624
  Receipt Date: 20140624
  Transmission Date: 20141212
  Serious: Yes (Life-Threatening, Hospitalization)
  Sender: FDA-Public Use
  Company Number: None

PATIENT
  Age: 65 Year
  Sex: Female
  Weight: 78.47 kg

DRUGS (22)
  1. VIDAZA [Suspect]
     Indication: MYELODYSPLASTIC SYNDROME
     Dosage: QD FOR 7 DAY CYCLE INTRAVENOUS
     Route: 042
     Dates: start: 20140604, end: 20140612
  2. ZANTAC [Concomitant]
  3. FLAGYL [Concomitant]
  4. ESTRACE [Concomitant]
  5. QUESTRAN [Concomitant]
  6. TEARS NATURALE [Concomitant]
  7. PROVENTIL [Concomitant]
  8. SYNTHROID [Concomitant]
  9. GLUCOTROL [Concomitant]
  10. FUROSEMIDE [Concomitant]
  11. RESTORIL [Concomitant]
  12. ZOVIRAX [Concomitant]
  13. CARDIZEM [Concomitant]
  14. OMEPRAZOLE [Concomitant]
  15. FLOVEN [Concomitant]
  16. LORTAB [Concomitant]
  17. ASPIRIN [Concomitant]
  18. KLOR-CON [Concomitant]
  19. CITALOPRAM HYDROBROMIDE [Concomitant]
  20. BENADRYL [Concomitant]
  21. NEURONTIN [Concomitant]
  22. XANAX [Concomitant]

REACTIONS (13)
  - Injection site mass [None]
  - Dyspnoea [None]
  - Dyspnoea exertional [None]
  - Pyrexia [None]
  - Cough [None]
  - Sputum retention [None]
  - Abdominal distension [None]
  - Cardiac failure congestive [None]
  - Pleural effusion [None]
  - Ascites [None]
  - Diarrhoea [None]
  - Asthenia [None]
  - Fatigue [None]
